FAERS Safety Report 8125324-6 (Version None)
Quarter: 2012Q1

REPORT INFORMATION
  Report Type: 
  Country: None (occurrence: None)
  Receive Date: 20120209
  Receipt Date: 20111013
  Transmission Date: 20120608
  Serious: Yes (Hospitalization, Other)
  Sender: FDA-Public Use
  Company Number: CA-GLAXOSMITHKLINE-A0948892A

PATIENT
  Sex: Female
  Weight: 95 kg

DRUGS (1)
  1. ADVAIR DISKUS 100/50 [Suspect]
     Indication: CHRONIC OBSTRUCTIVE PULMONARY DISEASE
     Dosage: 1PUFF TWICE PER DAY
     Route: 055
     Dates: start: 20070101

REACTIONS (5)
  - RESPIRATORY TRACT CONGESTION [None]
  - INCREASED UPPER AIRWAY SECRETION [None]
  - GROIN ABSCESS [None]
  - PNEUMONIA [None]
  - MALAISE [None]
